FAERS Safety Report 18086383 (Version 2)
Quarter: 2020Q3

REPORT INFORMATION
  Report Type: Report from Study
  Country: CO (occurrence: CO)
  Receive Date: 20200729
  Receipt Date: 20200915
  Transmission Date: 20201103
  Serious: Yes (Hospitalization)
  Sender: FDA-Public Use
  Company Number: NVSC2020CO206484

PATIENT
  Sex: Male

DRUGS (1)
  1. JADENU [Suspect]
     Active Substance: DEFERASIROX
     Indication: APLASTIC ANAEMIA
     Dosage: 360 MG, QD
     Route: 048

REACTIONS (5)
  - Malaise [Unknown]
  - Neoplasm malignant [Not Recovered/Not Resolved]
  - Inflammation [Unknown]
  - Anal haemorrhage [Unknown]
  - Loss of consciousness [Unknown]
